FAERS Safety Report 9245872 (Version 2)
Quarter: 2013Q2

REPORT INFORMATION
  Report Type: Spontaneous
  Country: DE (occurrence: DE)
  Receive Date: 20130422
  Receipt Date: 20130508
  Transmission Date: 20140414
  Serious: Yes (Hospitalization)
  Sender: FDA-Public Use
  Company Number: DE-NOVOPROD-375411

PATIENT
  Age: 49 Year
  Sex: Male
  Weight: 122.5 kg

DRUGS (7)
  1. NORDITROPIN FLEXPRO [Suspect]
     Indication: GROWTH HORMONE DEFICIENCY
     Dosage: 0.1 MG, QD
     Route: 058
     Dates: start: 20121215, end: 20130409
  2. HYDROCORTISON                      /00028601/ [Concomitant]
     Indication: ADRENAL INSUFFICIENCY
     Dosage: 25 MG, QD
     Route: 048
     Dates: start: 200907
  3. L-THYROXIN [Concomitant]
     Indication: ADRENAL INSUFFICIENCY
     Dosage: 75 UG, QD
     Route: 048
     Dates: start: 200907
  4. NEBIDO [Concomitant]
     Indication: HYPOPITUITARISM
     Dosage: 1000 MG, QD
     Route: 030
     Dates: start: 200907
  5. SIMVASTATIN [Concomitant]
     Indication: DYSLIPIDAEMIA
     Dosage: 40 MG, QD, TAKEN SINCE YEARS
     Route: 048
  6. PANTOPRAZOL [Concomitant]
     Indication: ABDOMINAL DISCOMFORT
     Dosage: 20 MG, QD TAKEN SINCE YEARS
     Route: 048
  7. MINIRIN                            /00361901/ [Concomitant]
     Indication: DIABETES INSIPIDUS
     Dosage: 10 UG, QD
     Route: 045
     Dates: start: 200907

REACTIONS (1)
  - Pituitary tumour benign [Recovered/Resolved]
